FAERS Safety Report 7497484-1 (Version None)
Quarter: 2011Q2

REPORT INFORMATION
  Report Type: 
  Country: None (occurrence: None)
  Receive Date: 20110523
  Receipt Date: 20110511
  Transmission Date: 20111010
  Serious: Yes (Hospitalization)
  Sender: FDA-Public Use
  Company Number: US-ELI_LILLY_AND_COMPANY-US201007007131

PATIENT
  Sex: Female

DRUGS (2)
  1. DARVOCET [Concomitant]
     Indication: ARTHRALGIA
  2. FORTEO [Suspect]
     Indication: OSTEOPOROSIS
     Dosage: 20 UG, DAILY (1/D)
     Dates: start: 20100708

REACTIONS (6)
  - HOSPITALISATION [None]
  - SPINAL COMPRESSION FRACTURE [None]
  - DYSSTASIA [None]
  - CONSTIPATION [None]
  - GAIT DISTURBANCE [None]
  - PAIN [None]
